FAERS Safety Report 12655164 (Version 1)
Quarter: 2016Q3

REPORT INFORMATION
  Report Type: Report from Study
  Country: US (occurrence: US)
  Receive Date: 20160816
  Receipt Date: 20160816
  Transmission Date: 20161109
  Serious: Yes (Hospitalization, Other)
  Sender: FDA-Public Use
  Company Number: US-AMGEN-USASL2016103047

PATIENT
  Age: 58 Year
  Sex: Female

DRUGS (6)
  1. ARAVA [Concomitant]
     Active Substance: LEFLUNOMIDE
     Indication: RHEUMATOID ARTHRITIS
     Dosage: 20 MG, UNK ONCE EVERY OTHER DAY
     Route: 065
  2. FOSAMAX [Concomitant]
     Active Substance: ALENDRONATE SODIUM
     Indication: BONE DENSITY ABNORMAL
     Dosage: 70 MG, QWK
     Route: 065
  3. ENBREL [Suspect]
     Active Substance: ETANERCEPT
     Indication: RHEUMATOID ARTHRITIS
     Dosage: 50 MG, QWK
     Route: 065
  4. VITAMIN D [Concomitant]
     Active Substance: CHOLECALCIFEROL
     Dosage: 50000 UNIT, UNK, ONCE EVERY TWO WEEKS
     Route: 065
  5. COZAAR [Concomitant]
     Active Substance: LOSARTAN POTASSIUM
     Indication: CARDIAC DISORDER
     Dosage: 1 DF, QD
     Route: 065
  6. PLAQUENIL [Concomitant]
     Active Substance: HYDROXYCHLOROQUINE SULFATE
     Indication: RHEUMATOID ARTHRITIS
     Dosage: 200 MG, BID, ONCE IN THE MORNING AND ONCE AT NIGHT
     Route: 065

REACTIONS (10)
  - Surgery [Unknown]
  - Neoplasm malignant [Unknown]
  - Nephrolithiasis [Unknown]
  - Intracranial aneurysm [Unknown]
  - Arthralgia [Unknown]
  - Swelling face [Unknown]
  - Gait disturbance [Unknown]
  - Nodule [Unknown]
  - Breast operation [Unknown]
  - Finger deformity [Unknown]

NARRATIVE: CASE EVENT DATE: 2005
